FAERS Safety Report 4320738-4 (Version None)
Quarter: 2004Q1

REPORT INFORMATION
  Report Type: 
  Country: None (occurrence: None)
  Receive Date: 20040315
  Receipt Date: 20040102
  Transmission Date: 20041129
  Serious: No
  Sender: FDA-Public Use
  Company Number: 2003175100US

PATIENT
  Sex: Male

DRUGS (2)
  1. BEXTRA [Suspect]
     Indication: BURSITIS
     Dosage: 20 MG, QD, ORAL; 20 MG, BID
     Route: 048
     Dates: start: 20030801
  2. MULTIVITAMIN [Concomitant]

REACTIONS (2)
  - BURSITIS [None]
  - CONDITION AGGRAVATED [None]
